FAERS Safety Report 9536343 (Version 1)
Quarter: 2013Q3

REPORT INFORMATION
  Report Type: Spontaneous
  Country: US (occurrence: None)
  Receive Date: 20130917
  Receipt Date: 20130917
  Transmission Date: 20140515
  Serious: Yes (Disabling)
  Sender: FDA-Public Use
  Company Number: None

PATIENT
  Age: 65 Year
  Sex: Female
  Weight: 70.31 kg

DRUGS (7)
  1. ZOCOR [Suspect]
     Indication: BLOOD CHOLESTEROL INCREASED
     Route: 048
     Dates: start: 19961110
  2. LIPITOR [Suspect]
  3. CRESTOR [Suspect]
  4. LIPITOR [Concomitant]
  5. AMITITRYPTILIN [Concomitant]
  6. KEPPRA [Concomitant]
  7. PRESSERVISSION [Concomitant]

REACTIONS (1)
  - Neuropathy peripheral [None]
